FAERS Safety Report 5314153-4 (Version None)
Quarter: 2007Q2

REPORT INFORMATION
  Report Type: 
  Country: None (occurrence: None)
  Receive Date: 20070426
  Receipt Date: 20070411
  Transmission Date: 20071010
  Serious: Yes (Other)
  Sender: FDA-Public Use
  Company Number: 2007000645

PATIENT
  Age: 58 Year
  Sex: Male

DRUGS (1)
  1. TARCEVA [Suspect]
     Indication: BILE DUCT CANCER
     Dosage: ORAL
     Route: 048

REACTIONS (3)
  - PULMONARY OEDEMA [None]
  - RESPIRATORY FAILURE [None]
  - TACHYCARDIA [None]
